FAERS Safety Report 21383533 (Version 1)
Quarter: 2022Q3

REPORT INFORMATION
  Report Type: Report from Study
  Country: CO (occurrence: CO)
  Receive Date: 20220927
  Receipt Date: 20220927
  Transmission Date: 20221026
  Serious: Yes (Hospitalization, Other)
  Sender: FDA-Public Use
  Company Number: CO-BRISTOL-MYERS SQUIBB COMPANY-BMS-2021-034610

PATIENT
  Age: 77 Year
  Sex: Female
  Weight: 85 kg

DRUGS (4)
  1. ORENCIA [Suspect]
     Active Substance: ABATACEPT
     Indication: Rheumatoid arthritis
     Dosage: 750 MG/ML; FREQUENCY: EVERY 28 DAYS
     Route: 042
     Dates: start: 20210317
  2. NIFEDIPINE [Concomitant]
     Active Substance: NIFEDIPINE
     Indication: Tension
     Dosage: 60 MILLIGRAM (EVERY 24 HOURS)
     Route: 048
     Dates: start: 20200614
  3. ASPIRIN [Concomitant]
     Active Substance: ASPIRIN
     Indication: Adverse event
     Dosage: 500 MILLIGRAM, QD
     Route: 048
     Dates: start: 20210518
  4. ESOMEPRAZOLE [Concomitant]
     Active Substance: ESOMEPRAZOLE
     Indication: Product used for unknown indication
     Route: 065

REACTIONS (9)
  - Arthralgia [Recovering/Resolving]
  - Abdominal pain [Recovering/Resolving]
  - Thyroid disorder [Not Recovered/Not Resolved]
  - Pain in extremity [Recovering/Resolving]
  - Headache [Not Recovered/Not Resolved]
  - Inflammation [Not Recovered/Not Resolved]
  - Cholelithiasis [Not Recovered/Not Resolved]
  - Influenza like illness [Not Recovered/Not Resolved]
  - Thyroid cancer [Not Recovered/Not Resolved]

NARRATIVE: CASE EVENT DATE: 20210322
